FAERS Safety Report 18528125 (Version 4)
Quarter: 2021Q1

REPORT INFORMATION
  Report Type: Report from Study
  Country: BR (occurrence: BR)
  Receive Date: 20201120
  Receipt Date: 20210304
  Transmission Date: 20210419
  Serious: Yes (Life-Threatening, Other)
  Sender: FDA-Public Use
  Company Number: BR-TAKEDA-BR202020644

PATIENT
  Age: 7 Year
  Sex: Male
  Weight: 34 kg

DRUGS (9)
  1. HYDROXYZINE [Concomitant]
     Active Substance: HYDROXYZINE HYDROCHLORIDE
     Indication: SEDATIVE THERAPY
  2. IDURSULFASE [Suspect]
     Active Substance: IDURSULFASE
     Dosage: UNK
     Route: 065
     Dates: start: 20200623
  3. IDURSULFASE [Suspect]
     Active Substance: IDURSULFASE
     Dosage: 3 DOSAGE FORM
     Route: 065
     Dates: start: 20200707
  4. IDURSULFASE [Suspect]
     Active Substance: IDURSULFASE
     Dosage: 3 DOSAGE FORM
     Route: 065
     Dates: start: 201911
  5. IDURSULFASE [Suspect]
     Active Substance: IDURSULFASE
     Dosage: 2 DOSAGE FORM, 1/WEEK
     Route: 042
     Dates: start: 20200916
  6. ATENSINA [Concomitant]
     Active Substance: CLONIDINE
     Indication: AGITATION
     Dosage: UNK, BID
     Dates: start: 202001
  7. ATENSINA [Concomitant]
     Active Substance: CLONIDINE
     Indication: FEELING OF RELAXATION
  8. IDURSULFASE [Suspect]
     Active Substance: IDURSULFASE
     Indication: MUCOPOLYSACCHARIDOSIS II
     Dosage: UNK
     Route: 065
  9. OLANZAPINE. [Concomitant]
     Active Substance: OLANZAPINE
     Indication: AGITATION

REACTIONS (9)
  - Diarrhoea [Unknown]
  - Inability to afford medication [Unknown]
  - Weight decreased [Unknown]
  - Agitation [Unknown]
  - Ear infection [Unknown]
  - Hydrocephalus [Unknown]
  - Off label use [Unknown]
  - Weight increased [Unknown]
  - Product dose omission issue [Recovered/Resolved]

NARRATIVE: CASE EVENT DATE: 202006
